FAERS Safety Report 9209476 (Version 1)
Quarter: 2013Q1

REPORT INFORMATION
  Report Type: Spontaneous
  Country: US (occurrence: None)
  Receive Date: 20120809
  Receipt Date: 20120809
  Transmission Date: 20140127
  Serious: Yes (Other)
  Sender: FDA-Public Use
  Company Number: 2012032352

PATIENT
  Age: 34 Year
  Sex: Male
  Weight: 89.81 kg

DRUGS (4)
  1. BERINERT [Suspect]
     Indication: HEREDITARY ANGIOEDEMA
     Dosage: TOTAL INTRAVENOUS (NOT OTHERWISE SPECIFIED) ), (INTRAVENOUS (NOT OTHERWISE SPECIFIED)(GIVEN 4 3X/WEEK, INTRAVENOUS (NOT OTHERWISE SPECIFIED)
     Route: 042
     Dates: start: 20120418, end: 20120420
  2. CINRYZE [Suspect]
     Indication: HEREDITARY ANGIOEDEMA
     Dates: start: 20120125, end: 20120125
  3. KALBITOR [Suspect]
     Indication: HEREDITARY ANGIOEDEMA
     Dosage: (GIVEN 4 TIMES 3X/ TIMES (25-JAN-2012, 24-FEB-2012, 06-MAR-2012 AND 13-APR-2012))
     Route: 042
     Dates: start: 20120413
  4. PERCOCET [Concomitant]

REACTIONS (1)
  - Drug ineffective [None]
